FAERS Safety Report 9688544 (Version 1)
Quarter: 2013Q4

REPORT INFORMATION
  Report Type: Spontaneous
  Country: US (occurrence: US)
  Receive Date: 20131114
  Receipt Date: 20131114
  Transmission Date: 20140711
  Serious: No
  Sender: FDA-Public Use
  Company Number: US-009507513-1310USA011784

PATIENT
  Sex: Female

DRUGS (8)
  1. REBETOL [Suspect]
     Route: 048
  2. VICTRELIS [Suspect]
     Dosage: 4 CAPSULES BY MOUTH THREE TIMES A DAY
     Route: 048
  3. PEGASYS [Suspect]
     Dosage: 180MCG/M
  4. OMEPRAZOLE [Concomitant]
  5. NORTRIPTYLINE [Concomitant]
  6. VAGIFEM [Concomitant]
  7. GABAPENTIN [Concomitant]
  8. DILTIAZEM HYDROCHLORIDE [Concomitant]

REACTIONS (4)
  - Nausea [Unknown]
  - Vomiting [Unknown]
  - Diarrhoea [Unknown]
  - Fatigue [Unknown]
